FAERS Safety Report 4846321-X (Version None)
Quarter: 2005Q4

REPORT INFORMATION
  Report Type: 
  Country: None (occurrence: None)
  Receive Date: 20051206
  Receipt Date: 20051125
  Transmission Date: 20060501
  Serious: Yes (Other)
  Sender: FDA-Public Use
  Company Number: DE-ROCHE-426152

PATIENT
  Sex: Female

DRUGS (2)
  1. BONDRONAT [Suspect]
     Indication: DRUG USE FOR UNKNOWN INDICATION
     Route: 042
  2. THEOPHYLLINE [Concomitant]

REACTIONS (2)
  - DRUG LEVEL INCREASED [None]
  - EPILEPSY [None]
